FAERS Safety Report 20439660 (Version 2)
Quarter: 2022Q1

REPORT INFORMATION
  Report Type: Spontaneous
  Country: US (occurrence: US)
  Receive Date: 20220207
  Receipt Date: 20220303
  Transmission Date: 20220423
  Serious: No
  Sender: FDA-Public Use
  Company Number: US-PFIZER INC-202200175179

PATIENT
  Age: 81 Year
  Sex: Female
  Weight: 71.21 kg

DRUGS (1)
  1. PAXLOVID [Suspect]
     Active Substance: NIRMATRELVIR\RITONAVIR
     Indication: COVID-19
     Dosage: UNK
     Dates: start: 20220119, end: 20220124

REACTIONS (13)
  - Nausea [Not Recovered/Not Resolved]
  - Diarrhoea [Recovered/Resolved]
  - Gastrointestinal pain [Unknown]
  - Constipation [Unknown]
  - Weight decreased [Unknown]
  - Urine output decreased [Unknown]
  - Dyschezia [Unknown]
  - Decreased appetite [Recovering/Resolving]
  - Dysgeusia [Unknown]
  - Product taste abnormal [Unknown]
  - Blood pressure abnormal [Unknown]
  - White blood cell count increased [Unknown]
  - Urinary hesitation [Unknown]

NARRATIVE: CASE EVENT DATE: 20220101
